FAERS Safety Report 12874755 (Version 1)
Quarter: 2016Q4

REPORT INFORMATION
  Report Type: Spontaneous
  Country: US (occurrence: US)
  Receive Date: 20161022
  Receipt Date: 20161022
  Transmission Date: 20170207
  Serious: No
  Sender: FDA-Public Use
  Company Number: US-B.I. PHARMACEUTICALS,INC./RIDGEFIELD-2016-BI-064734

PATIENT
  Age: 73 Year
  Sex: Female

DRUGS (2)
  1. COMBIVENT [Suspect]
     Active Substance: ALBUTEROL SULFATE\IPRATROPIUM BROMIDE
     Indication: PRODUCT USED FOR UNKNOWN INDICATION
     Dosage: FORM STRENGTH/ UNIT DOSE: 20 MCG / 100 MCG;
     Route: 055
     Dates: start: 201307
  2. COMBIVENT [Suspect]
     Active Substance: ALBUTEROL SULFATE\IPRATROPIUM BROMIDE
     Dosage: FORM STRENGTH/UNIT DOSE: 18 MCG / 103 MCG
     Route: 055
     Dates: start: 200408, end: 201304

REACTIONS (2)
  - Fall [Recovered/Resolved with Sequelae]
  - Hepatomegaly [Unknown]

NARRATIVE: CASE EVENT DATE: 20161004
